FAERS Safety Report 8839590 (Version 2)
Quarter: 2012Q4

REPORT INFORMATION
  Report Type: 
  Country: US (occurrence: US)
  Receive Date: 20121015
  Receipt Date: 20121226
  Transmission Date: 20130627
  Serious: Yes (Hospitalization)
  Sender: FDA-Public Use
  Company Number: US-BAYER-2012-104666

PATIENT
  Age: 26 Year
  Sex: Female
  Weight: 63.49 kg

DRUGS (10)
  1. YAZ [Suspect]
     Indication: CONTRACEPTION
     Dosage: UNK
     Dates: start: 200902, end: 201010
  2. GIANVI [Suspect]
     Indication: BIRTH CONTROL
     Dosage: UNK
     Dates: start: 201005, end: 201009
  3. ARMOUR THYROID [Concomitant]
     Indication: THYROID DISORDER NOS
     Dosage: 90 mg, BID
     Route: 048
     Dates: start: 200903
  4. FISH OIL [Concomitant]
     Dosage: UNK UNK, ONCE, daily
     Route: 048
  5. MULTIVITAMIN [Concomitant]
     Dosage: 2000 mg, ONCE, daily
  6. PRENATAL VITAMIN [Concomitant]
     Dosage: 1 QD
     Route: 048
  7. VITAMIN D3 [Concomitant]
     Dosage: 10000 iu, 2 times a week
     Route: 048
  8. CALCIUM +VIT D [Concomitant]
     Dosage: 600 mg, UNK
     Route: 048
  9. MS CONTIN [Concomitant]
     Indication: PAIN
     Dosage: 30 mg, BID, daily
  10. SENNA [Concomitant]
     Dosage: UNK UNK, BID

REACTIONS (6)
  - Pulmonary embolism [None]
  - Pulmonary infarction [None]
  - Pain [None]
  - Injury [None]
  - Pain [None]
  - Fear [None]
